FAERS Safety Report 8001675-0 (Version None)
Quarter: 2011Q4

REPORT INFORMATION
  Report Type: 
  Country: None (occurrence: None)
  Receive Date: 20111222
  Receipt Date: 20111219
  Transmission Date: 20120403
  Serious: Yes (Life-Threatening, Other)
  Sender: FDA-Public Use
  Company Number: GB-JNJFOC-20111009789

PATIENT
  Age: 8 Year
  Sex: Male
  Weight: 28.1 kg

DRUGS (2)
  1. MELATONIN [Concomitant]
     Indication: PRODUCT USED FOR UNKNOWN INDICATION
     Route: 065
  2. CONCERTA [Suspect]
     Indication: ATTENTION DEFICIT/HYPERACTIVITY DISORDER
     Route: 048
     Dates: start: 20110824, end: 20111004

REACTIONS (4)
  - SUICIDAL IDEATION [None]
  - INTENTIONAL SELF-INJURY [None]
  - PARANOIA [None]
  - PSYCHOTIC DISORDER [None]
